FAERS Safety Report 9105446 (Version 2)
Quarter: 2013Q1

REPORT INFORMATION
  Report Type: Spontaneous
  Country: US (occurrence: US)
  Receive Date: 20130220
  Receipt Date: 20130313
  Transmission Date: 20140127
  Serious: No
  Sender: FDA-Public Use
  Company Number: US-PFIZER INC-2013062921

PATIENT
  Age: 49 Year
  Sex: Female

DRUGS (6)
  1. CELEBREX [Suspect]
     Dosage: 200 MG, 2X/DAY
     Route: 048
  2. PREMPRO [Suspect]
     Dosage: 0.3-1.5 MG
  3. ASPIRIN 81 [Concomitant]
     Dosage: UNK
  4. TRAMADOL [Concomitant]
     Dosage: 50 MG, UNK
  5. ELAVIL [Concomitant]
     Dosage: 10 MG, UNK
  6. LEVOID [Concomitant]
     Dosage: 0.375 MG, UNK

REACTIONS (1)
  - Pain [Unknown]
